FAERS Safety Report 7241176-0 (Version None)
Quarter: 2011Q1

REPORT INFORMATION
  Report Type: 
  Country: None (occurrence: None)
  Receive Date: 20110120
  Receipt Date: 20110120
  Transmission Date: 20110831
  Serious: Yes (Disabling, Other)
  Sender: FDA-Public Use
  Company Number: None

PATIENT
  Sex: Female
  Weight: 61.6892 kg

DRUGS (1)
  1. TERBINAFINE (FOR LAMISIL) [Suspect]
     Indication: ONYCHOMYCOSIS
     Dosage: 250 MG 1 TABET/DAY ORAL
     Route: 048
     Dates: start: 20100810, end: 20100920

REACTIONS (5)
  - DRY THROAT [None]
  - HEADACHE [None]
  - MIDDLE INSOMNIA [None]
  - AGEUSIA [None]
  - DEPRESSED MOOD [None]
